FAERS Safety Report 10666297 (Version 1)
Quarter: 2014Q4

REPORT INFORMATION
  Report Type: Spontaneous
  Country: DE (occurrence: DE)
  Receive Date: 20141220
  Receipt Date: 20141220
  Transmission Date: 20150529
  Serious: Yes (Life-Threatening, Hospitalization)
  Sender: FDA-Public Use
  Company Number: GXKR2014DE004731

PATIENT

DRUGS (13)
  1. CYMBALTA [Interacting]
     Active Substance: DULOXETINE HYDROCHLORIDE
     Dosage: UNK
  2. QUILONUM - SLOW RELEASE [Interacting]
     Active Substance: LITHIUM CARBONATE
     Dosage: 200 MG, UNK
     Dates: start: 20130313
  3. RISPERIDONE. [Suspect]
     Active Substance: RISPERIDONE
     Dosage: UNK
  4. QUILONUM - SLOW RELEASE [Interacting]
     Active Substance: LITHIUM CARBONATE
     Dosage: 400 MG, UNK
     Dates: start: 20130301, end: 20130307
  5. QUILONUM - SLOW RELEASE [Interacting]
     Active Substance: LITHIUM CARBONATE
     Dosage: 600 MG, UNK
     Dates: start: 20130308, end: 20130313
  6. BIPERIDEN [Concomitant]
     Active Substance: BIPERIDEN
  7. ELONTRIL [Interacting]
     Active Substance: BUPROPION HYDROCHLORIDE
     Dosage: 450 MG, UNK
     Dates: start: 20130206, end: 20130314
  8. ELONTRIL [Interacting]
     Active Substance: BUPROPION HYDROCHLORIDE
     Dosage: 300 MG, UNK
     Dates: start: 20130315
  9. QUILONUM - SLOW RELEASE [Interacting]
     Active Substance: LITHIUM CARBONATE
     Dosage: 200 MG, UNK
     Dates: start: 20130328
  10. ABILIFY [Interacting]
     Active Substance: ARIPIPRAZOLE
     Dosage: 30 MG, UNK
     Dates: start: 20121207, end: 20130314
  11. LORAZEPAM. [Concomitant]
     Active Substance: LORAZEPAM
  12. ABILIFY [Interacting]
     Active Substance: ARIPIPRAZOLE
     Dosage: 20 MG, UNK
     Dates: start: 20121207, end: 20130314
  13. PANTOZOL [Concomitant]
     Active Substance: PANTOPRAZOLE SODIUM

REACTIONS (1)
  - Serotonin syndrome [Recovered/Resolved]

NARRATIVE: CASE EVENT DATE: 20130310
